FAERS Safety Report 21482968 (Version 11)
Quarter: 2025Q3

REPORT INFORMATION
  Report Type: Report from Study
  Country: GB (occurrence: GB)
  Receive Date: 20221020
  Receipt Date: 20250725
  Transmission Date: 20251020
  Serious: Yes (Life-Threatening, Hospitalization, Other)
  Sender: NOVARTIS
  Company Number: GB-NOVARTISPH-NVSC2022GB190992

PATIENT
  Age: 48 Year
  Sex: Female

DRUGS (3)
  1. MAYZENT [Suspect]
     Active Substance: SIPONIMOD
     Indication: Secondary progressive multiple sclerosis
     Dosage: 2 MG, QD (28 TABLET 2 X 14 TABLETS)
     Route: 048
     Dates: start: 20220218
  2. MAYZENT [Suspect]
     Active Substance: SIPONIMOD
     Indication: Multiple sclerosis
     Dosage: 2 MG, QD
     Route: 048
     Dates: start: 20220718
  3. MAYZENT [Suspect]
     Active Substance: SIPONIMOD
     Dosage: 2 MG, QD (28 TABLET 2 X 14 TABLETS)
     Route: 048

REACTIONS (10)
  - Urinary tract infection [Recovered/Resolved]
  - Body temperature decreased [Unknown]
  - Pyrexia [Unknown]
  - Mental impairment [Not Recovered/Not Resolved]
  - Multiple sclerosis [Unknown]
  - Lower respiratory tract infection [Unknown]
  - Urinary tract infection [Unknown]
  - Visual impairment [Not Recovered/Not Resolved]
  - Product use issue [Not Recovered/Not Resolved]
  - Product supply issue [Unknown]

NARRATIVE: CASE EVENT DATE: 20220718
